FAERS Safety Report 9625746 (Version 9)
Quarter: 2015Q2

REPORT INFORMATION
  Report Type: Report from Study
  Country: DE (occurrence: DE)
  Receive Date: 20131016
  Receipt Date: 20150626
  Transmission Date: 20150821
  Serious: Yes (Hospitalization)
  Sender: FDA-Public Use
  Company Number: DE-UCBSA-100258

PATIENT
  Sex: Female
  Weight: 90 kg

DRUGS (13)
  1. IBUPROFEN. [Concomitant]
     Active Substance: IBUPROFEN
     Indication: RHEUMATOID ARTHRITIS
     Dosage: 600 MG AS NEEDED
     Route: 048
     Dates: start: 20090518, end: 20130730
  2. OMEPRAZOLE. [Concomitant]
     Active Substance: OMEPRAZOLE
     Dosage: 20 MG, ONCE DAILY (QD)
     Dates: start: 20130804
  3. UNACID PD [Concomitant]
     Active Substance: SULTAMICILLIN TOSYLATE
     Dosage: UNK UNK, 2X/DAY (BID)
     Route: 048
     Dates: start: 20130731
  4. PARACETAMOL [Concomitant]
     Active Substance: ACETAMINOPHEN
     Dosage: UNK
     Dates: start: 2013
  5. DICLOFENAC [Concomitant]
     Active Substance: DICLOFENAC
     Indication: RHEUMATOID ARTHRITIS
     Dosage: 50MG PRN
     Route: 048
     Dates: start: 20130730, end: 20140120
  6. MELOXICAM. [Concomitant]
     Active Substance: MELOXICAM
     Indication: RHEUMATOID ARTHRITIS
     Dosage: 15 MG AS NEEDED
     Route: 048
     Dates: start: 200910, end: 20130730
  7. MONO-EMBOLEX [Concomitant]
     Active Substance: CERTOPARIN SODIUM
     Dosage: 3000 IU, ONCE DAILY (QD)
     Route: 058
     Dates: start: 20130804
  8. HEPARIN [Concomitant]
     Active Substance: HEPARIN SODIUM
  9. CERTOLIZUMAB PEGOL RA [Suspect]
     Active Substance: CERTOLIZUMAB PEGOL
     Indication: RHEUMATOID ARTHRITIS
     Dosage: 200 MG, UNK
     Route: 058
     Dates: start: 20120426, end: 20130720
  10. CERTOLIZUMAB PEGOL RA [Suspect]
     Active Substance: CERTOLIZUMAB PEGOL
     Dosage: 200 MG, EV 2 WEEKS(QOW)
     Route: 058
     Dates: start: 2013, end: 201308
  11. METHOTREXATE [Suspect]
     Active Substance: METHOTREXATE
     Indication: RHEUMATOID ARTHRITIS
     Dosage: QS
     Route: 048
     Dates: start: 200910, end: 20130730
  12. FOLIC ACID. [Concomitant]
     Active Substance: FOLIC ACID
     Indication: DRUG TOLERANCE
     Dosage: QS
     Route: 048
     Dates: start: 200910, end: 20130730
  13. NOVALGIN [Concomitant]
     Active Substance: METAMIZOLE SODIUM
     Dosage: UNK
     Dates: start: 2013

REACTIONS (4)
  - Abscess limb [Recovered/Resolved]
  - Cellulitis [Recovered/Resolved]
  - Laceration [Recovered/Resolved]
  - Impaired healing [Recovered/Resolved]

NARRATIVE: CASE EVENT DATE: 20130731
